FAERS Safety Report 16088725 (Version 5)
Quarter: 2023Q1

REPORT INFORMATION
  Report Type: Report from Study
  Country: JP (occurrence: JP)
  Receive Date: 20190319
  Receipt Date: 20230213
  Transmission Date: 20230417
  Serious: Yes (Hospitalization)
  Sender: FDA-Public Use
  Company Number: JP-ABBVIE-18K-087-2383613-00

PATIENT
  Sex: Female
  Weight: 77 kg

DRUGS (17)
  1. CARBIDOPA\LEVODOPA [Suspect]
     Active Substance: CARBIDOPA\LEVODOPA
     Indication: Parkinson^s disease
     Dosage: MD: 8.1ML, CD: 2.6ML ? 16HRS, ED: 2ML
     Route: 050
     Dates: start: 20180524, end: 20190111
  2. CARBIDOPA\LEVODOPA [Suspect]
     Active Substance: CARBIDOPA\LEVODOPA
     Dosage: MD: 10.1ML, ?CD: 2.9 ML/HR ? 16 HRS?ED: 2 ML/UNIT ? 3 TIMES
     Route: 050
     Dates: start: 20190112, end: 20190122
  3. CARBIDOPA\LEVODOPA [Suspect]
     Active Substance: CARBIDOPA\LEVODOPA
     Dosage: MD: 10.1 ML?CD: 3.2 ML/HR ? 16 HRS?ED: 2 ML/UNIT ? 3 TIMES
     Route: 050
     Dates: start: 20190123, end: 20190205
  4. CARBIDOPA\LEVODOPA [Suspect]
     Active Substance: CARBIDOPA\LEVODOPA
     Dosage: MD: 10.1 ML?CD: 3.5 ML/HR ? 16 HRS?ED: 2 ML/UNIT ? 3 TIMES
     Route: 050
     Dates: start: 20190206, end: 20190219
  5. CARBIDOPA\LEVODOPA [Suspect]
     Active Substance: CARBIDOPA\LEVODOPA
     Dosage: MD: 10.1 ML?CD: 3.5 ML/HR ? 16 HRS?ED: 2 ML/UNIT ? 3 TIMES
     Route: 050
     Dates: start: 20190220, end: 20190305
  6. CARBIDOPA\LEVODOPA [Suspect]
     Active Substance: CARBIDOPA\LEVODOPA
     Dosage: MD: 10.1 ML?CD: 4 ML/HR ? 16 HRS?ED: 2 ML/UNIT ? 3 TIMES
     Route: 050
     Dates: start: 20190306, end: 20190319
  7. CARBIDOPA\LEVODOPA [Suspect]
     Active Substance: CARBIDOPA\LEVODOPA
     Dosage: MD: 5 ML?CD: 4 ML/HR ? 16 HRS?ED: 2 ML/UNIT ? 2 TIMES
     Route: 050
     Dates: start: 20190320
  8. PERGOLIDE MESILATE [Concomitant]
     Indication: Product used for unknown indication
     Route: 048
  9. PERGOLIDE MESILATE [Concomitant]
     Indication: Product used for unknown indication
     Route: 065
  10. AMANTADINE HYDROCHLORIDE [Concomitant]
     Active Substance: AMANTADINE HYDROCHLORIDE
     Indication: Product used for unknown indication
     Route: 048
  11. SELEGILINE HYDROCHLORIDE [Concomitant]
     Active Substance: SELEGILINE HYDROCHLORIDE
     Indication: Product used for unknown indication
     Route: 048
     Dates: end: 20180806
  12. ZONISAMIDE [Concomitant]
     Active Substance: ZONISAMIDE
     Indication: Product used for unknown indication
     Route: 048
  13. ISTRADEFYLLINE [Concomitant]
     Active Substance: ISTRADEFYLLINE
     Indication: Product used for unknown indication
     Route: 048
  14. POLAPREZINC [Concomitant]
     Active Substance: POLAPREZINC
     Indication: Product used for unknown indication
     Route: 048
  15. LEVODOPA [Concomitant]
     Active Substance: LEVODOPA
     Indication: Parkinson^s disease
     Route: 042
     Dates: start: 20180522, end: 20180523
  16. RASAGILINE MESYLATE [Concomitant]
     Active Substance: RASAGILINE MESYLATE
     Indication: Parkinson^s disease
     Route: 048
     Dates: start: 20180821
  17. URSODIOL [Concomitant]
     Active Substance: URSODIOL
     Indication: Product used for unknown indication
     Dates: start: 20180612, end: 20181214

REACTIONS (5)
  - Cholelithiasis [Recovered/Resolved]
  - Feeling abnormal [Unknown]
  - Product use issue [Unknown]
  - Weight increased [Unknown]
  - Multiple use of single-use product [Unknown]

NARRATIVE: CASE EVENT DATE: 20180101
